FAERS Safety Report 16246941 (Version 2)
Quarter: 2019Q2

REPORT INFORMATION
  Report Type: Spontaneous
  Country: GB (occurrence: GB)
  Receive Date: 20190427
  Receipt Date: 20190430
  Transmission Date: 20190711
  Serious: Yes (Hospitalization)
  Sender: FDA-Public Use
  Company Number: GB-JNJFOC-20190433076

PATIENT
  Age: 22 Year
  Sex: Male

DRUGS (2)
  1. ACETAMINOPHEN. [Suspect]
     Active Substance: ACETAMINOPHEN
     Indication: PRODUCT USED FOR UNKNOWN INDICATION
     Route: 048
  2. ACETAMINOPHEN. [Suspect]
     Active Substance: ACETAMINOPHEN
     Route: 048

REACTIONS (7)
  - Aspartate aminotransferase increased [Unknown]
  - Hepatomegaly [Unknown]
  - Prothrombin time prolonged [Unknown]
  - Haematemesis [Unknown]
  - Gamma-glutamyltransferase increased [Unknown]
  - Jaundice [Unknown]
  - Intentional overdose [Unknown]
